FAERS Safety Report 15864786 (Version 1)
Quarter: 2019Q1

REPORT INFORMATION
  Report Type: Spontaneous
  Country: US (occurrence: US)
  Receive Date: 20190124
  Receipt Date: 20190124
  Transmission Date: 20190417
  Serious: No
  Sender: FDA-Public Use
  Company Number: US-COVIS PHARMA B.V.-2018COV03691

PATIENT
  Sex: Female

DRUGS (1)
  1. ZANAFLEX [Suspect]
     Active Substance: TIZANIDINE HYDROCHLORIDE

REACTIONS (2)
  - Unevaluable event [Unknown]
  - Swollen tongue [Unknown]
